FAERS Safety Report 9523241 (Version 1)
Quarter: 2013Q1

REPORT INFORMATION
  Report Type: Spontaneous
  Country: US (occurrence: None)
  Receive Date: 20130305
  Receipt Date: 20130305
  Transmission Date: 20140127
  Serious: Yes (Other)
  Sender: FDA-Public Use
  Company Number: 163-21880-12072356

PATIENT
  Age: 62 Year
  Sex: Male

DRUGS (5)
  1. REVLIMID (LENALIDOMIDE) (CAPSULES) [Suspect]
     Indication: MYELODYSPLASTIC SYNDROME
     Route: 048
     Dates: start: 20120617, end: 20120702
  2. ZYRTEC (CETIRIZINE HYDROCHLORIDE) [Concomitant]
  3. PRILOSEC [Concomitant]
  4. DILTIAZEM [Concomitant]
  5. XANAX (ALPRAZOLAM) [Concomitant]

REACTIONS (3)
  - Platelet count decreased [None]
  - Oedema peripheral [None]
  - Rash macular [None]
